FAERS Safety Report 20224850 (Version 1)
Quarter: 2021Q4

REPORT INFORMATION
  Report Type: Spontaneous
  Country: US (occurrence: US)
  Receive Date: 20211223
  Receipt Date: 20211223
  Transmission Date: 20220303
  Serious: No
  Sender: FDA-Public Use
  Company Number: US-SA-SAC20211217000383

PATIENT
  Age: 51 Year
  Sex: Female

DRUGS (1)
  1. DUPIXENT [Suspect]
     Active Substance: DUPILUMAB
     Dosage: 300 MG/DL
     Route: 058
     Dates: start: 202106

REACTIONS (2)
  - Accident [Unknown]
  - Surgery [Unknown]

NARRATIVE: CASE EVENT DATE: 20211108
